FAERS Safety Report 20648308 (Version 2)
Quarter: 2022Q2

REPORT INFORMATION
  Report Type: Spontaneous
  Country: ES (occurrence: ES)
  Receive Date: 20220329
  Receipt Date: 20220412
  Transmission Date: 20220721
  Serious: Yes (Hospitalization, Other)
  Sender: FDA-Public Use
  Company Number: ES-AMERICAN REGENT INC-2022000800

PATIENT
  Age: 75 Year
  Sex: Male
  Weight: 72 kg

DRUGS (16)
  1. FERINJECT [Suspect]
     Active Substance: FERRIC CARBOXYMALTOSE
     Indication: Iron deficiency anaemia
     Dosage: 250 ML IN SF SINGLE DOSE (1000 MG)
     Dates: start: 20220307, end: 20220307
  2. FERINJECT [Suspect]
     Active Substance: FERRIC CARBOXYMALTOSE
     Dosage: UNK
     Route: 042
     Dates: start: 202203, end: 202203
  3. OMEPRAZOLE [Concomitant]
     Active Substance: OMEPRAZOLE
     Indication: Product used for unknown indication
     Dosage: 56 HARD CAPSULES GASTRORESIST, DINNER
     Route: 048
  4. CALCIFEDIOL [Concomitant]
     Active Substance: CALCIFEDIOL
     Indication: Product used for unknown indication
     Dosage: 10 SOFT CAPSULES (1 DOSAGE FORMS,1 IN 21 D)
     Route: 048
  5. FERPLEX [Concomitant]
     Indication: Product used for unknown indication
     Dosage: 20 DRINKABLE VIALS 15ML 1 AMPOULES/VIALS BEFORE BREAKFAST
     Route: 048
  6. TRINISPRAY [Concomitant]
     Indication: Chest pain
     Dosage: 0.4MG/0.05ML 200 SOLUTION FOR SUBLINGUAL SPRAYING, TWO SUBLINGUAL  APPLICATIONS IF CHEST PAIN
     Route: 060
  7. HIBOR [Concomitant]
     Indication: Product used for unknown indication
     Dosage: 30 PRE-FILLED SYRINGES 0.30ML (1 DOSAGE FORMS,1 IN 24 HR)
     Route: 065
  8. FUROSEMIDE [Concomitant]
     Active Substance: FUROSEMIDE
     Indication: Product used for unknown indication
     Dosage: 30 EFG TABLETS, BREAKFAST (0.5 DOSAGE FORMS,1 IN 1 D)
     Route: 048
  9. TAMSULOSIN HYDROCHLORIDE [Concomitant]
     Active Substance: TAMSULOSIN HYDROCHLORIDE
     Indication: Product used for unknown indication
     Dosage: BEFORE BREAKFAST, 30 PROLONGUED -RELEASE TABLETS (1 DOSAGE FORMS)
     Route: 048
  10. BISOPROLOL [Concomitant]
     Active Substance: BISOPROLOL
     Indication: Product used for unknown indication
     Dosage: 60 EFG TABLETS (1 DOSAGE FORMS,1 IN 12 HR)
     Route: 048
  11. BUSCAPINA [Concomitant]
     Indication: Product used for unknown indication
     Dosage: 60 COATED TABLETS (1 DOSAGE FORMS,1 IN 8 HR)
     Route: 048
  12. CYANOCOBALAMIN [Concomitant]
     Active Substance: CYANOCOBALAMIN
     Indication: Product used for unknown indication
     Dosage: 5 AMPOULES 2ML (1 DOSAGE FORMS,1 IN 30 D)
     Route: 048
  13. PARACETAMOL CINFA [Concomitant]
     Indication: Pain
     Dosage: 40 TABLETS EFG. ADVICE TO THE PATIENT: 1 TABLET IF PAIN (1 DOSAGE FORMS)
  14. ATORVASTATIN CALCIUM [Concomitant]
     Active Substance: ATORVASTATIN CALCIUM
     Indication: Product used for unknown indication
     Dosage: 28 COATED TABLETS, DINNER (1 DOSAGE FORMS,1 IN 1 D)
     Route: 048
  15. DUTASTERIDE AND TAMSULOSIN HYDROCHLORIDE [Concomitant]
     Active Substance: DUTASTERIDE\TAMSULOSIN HYDROCHLORIDE
     Indication: Product used for unknown indication
     Dosage: 0.5/0.4MG 30 CAPSDUR, BEFORE GOING TO BED (1 DOSAGE FORMS,1 IN 1 D)
     Route: 048
  16. CLORAZEPATE DIPOTASSIUM [Concomitant]
     Active Substance: CLORAZEPATE DIPOTASSIUM
     Indication: Product used for unknown indication
     Dosage: 30 CAPSULES. ADVICE TO THE PATIENT: S.P.
     Route: 065

REACTIONS (3)
  - Ventricular tachycardia [Recovered/Resolved]
  - Chest pain [Recovered/Resolved]
  - Syncope [Recovered/Resolved]

NARRATIVE: CASE EVENT DATE: 20220301
